FAERS Safety Report 22066495 (Version 1)
Quarter: 2023Q1

REPORT INFORMATION
  Report Type: Spontaneous
  Country: US (occurrence: US)
  Receive Date: 20230306
  Receipt Date: 20230306
  Transmission Date: 20230418
  Serious: Yes (Hospitalization, Other)
  Sender: FDA-Public Use
  Company Number: US-CIPLA LTD.-2023US01143

PATIENT

DRUGS (2)
  1. HYDRALAZINE [Suspect]
     Active Substance: HYDRALAZINE HYDROCHLORIDE
     Indication: Hypertension
     Dosage: UNK
     Route: 065
  2. HYDRALAZINE [Suspect]
     Active Substance: HYDRALAZINE HYDROCHLORIDE
     Dosage: DOSE UP-TITRATED TO 50 MILLIGRAM, BID ONE MONTH LATER
     Route: 065

REACTIONS (3)
  - Acute hepatic failure [Recovering/Resolving]
  - Drug-induced liver injury [Recovering/Resolving]
  - Encephalopathy [Recovering/Resolving]
